FAERS Safety Report 6587506-4 (Version None)
Quarter: 2010Q1

REPORT INFORMATION
  Report Type: 
  Country: None (occurrence: None)
  Receive Date: 20100204
  Receipt Date: 20100125
  Transmission Date: 20100710
  Serious: Yes (Death)
  Sender: FDA-Public Use
  Company Number: 20108057

PATIENT
  Age: 13 Year
  Sex: Male

DRUGS (1)
  1. LIORESAL [Suspect]
     Indication: MUSCLE SPASTICITY
     Dosage: 289.9 MCG, DAILY; INTRATHECAL
     Route: 039

REACTIONS (3)
  - CHOKING [None]
  - UNEVALUABLE EVENT [None]
  - UNRESPONSIVE TO STIMULI [None]
